FAERS Safety Report 10936340 (Version 1)
Quarter: 2015Q1

REPORT INFORMATION
  Report Type: Spontaneous
  Country: US (occurrence: None)
  Receive Date: 20150320
  Receipt Date: 20150320
  Transmission Date: 20150721
  Serious: Yes (Hospitalization)
  Sender: FDA-Public Use
  Company Number: None

PATIENT
  Age: 65 Year
  Sex: Female

DRUGS (9)
  1. JARDIANCE [Suspect]
     Active Substance: EMPAGLIFLOZIN
     Indication: DIABETES MELLITUS
     Route: 048
  2. LOSARTAN [Concomitant]
     Active Substance: LOSARTAN
  3. CITALOPRAM [Concomitant]
     Active Substance: CITALOPRAM HYDROBROMIDE
  4. PRAVASTATIN [Concomitant]
     Active Substance: PRAVASTATIN\PRAVASTATIN SODIUM
  5. ALLOPURINOL. [Concomitant]
     Active Substance: ALLOPURINOL
  6. GLIPIZIDE. [Concomitant]
     Active Substance: GLIPIZIDE
  7. CARVEDILOL. [Concomitant]
     Active Substance: CARVEDILOL
  8. HCTZ [Concomitant]
     Active Substance: HYDROCHLOROTHIAZIDE
  9. AMLODIPINE [Concomitant]
     Active Substance: AMLODIPINE BESYLATE

REACTIONS (5)
  - Chest pain [None]
  - Palpitations [None]
  - Renal failure [None]
  - Blood ketone body increased [None]
  - Nausea [None]

NARRATIVE: CASE EVENT DATE: 20150105
